FAERS Safety Report 8496815-3 (Version None)
Quarter: 2012Q3

REPORT INFORMATION
  Report Type: 
  Country: None (occurrence: None)
  Receive Date: 20120709
  Receipt Date: 20120627
  Transmission Date: 20120928
  Serious: Yes (Other)
  Sender: FDA-Public Use
  Company Number: JP-PFIZER INC-2012002710

PATIENT
  Age: 66 Year
  Sex: Female
  Weight: 100 kg

DRUGS (3)
  1. SUTENT [Suspect]
     Indication: RENAL CELL CARCINOMA
     Dosage: 37.5 MG, 1X/DAY
     Route: 048
     Dates: start: 20110810, end: 20111001
  2. SUTENT [Suspect]
     Dosage: 25 MG, 1X/DAY
     Route: 048
     Dates: start: 20111011, end: 20120430
  3. URSO 250 [Concomitant]

REACTIONS (4)
  - BLOOD BILIRUBIN INCREASED [None]
  - PROTEIN TOTAL DECREASED [None]
  - ASCITES [None]
  - OEDEMA PERIPHERAL [None]
